FAERS Safety Report 5163477-2 (Version None)
Quarter: 2006Q4

REPORT INFORMATION
  Report Type: 
  Country: None (occurrence: None)
  Receive Date: 20061128
  Receipt Date: 20061128
  Transmission Date: 20070319
  Serious: Yes (Life-Threatening)
  Sender: FDA-Public Use
  Company Number: None

PATIENT
  Age: 42 Year
  Sex: Male
  Weight: 61.2356 kg

DRUGS (1)
  1. EQUATE PAIN RELIEVER ACETAMINOPHEN 500 MG [Suspect]
     Indication: BACK PAIN
     Dosage: 8   DAILY
     Dates: start: 20061028, end: 20061110

REACTIONS (3)
  - ABDOMINAL PAIN UPPER [None]
  - NAUSEA [None]
  - VOMITING [None]
